FAERS Safety Report 9632428 (Version 4)
Quarter: 2013Q4

REPORT INFORMATION
  Report Type: Spontaneous
  Country: US (occurrence: US)
  Receive Date: 20131018
  Receipt Date: 20131107
  Transmission Date: 20140711
  Serious: Yes (Other)
  Sender: FDA-Public Use
  Company Number: US-PFIZER INC-2012240921

PATIENT
  Age: 45 Year
  Sex: Female

DRUGS (13)
  1. ZOLOFT [Suspect]
     Indication: DEPRESSION
     Dosage: 25 MG, DAILY
     Route: 048
     Dates: start: 20121213, end: 20121218
  2. IBUPROFEN [Concomitant]
     Dosage: 800 MG, 4X/DAY
  3. CHLORZOXAZONE [Concomitant]
     Dosage: 500 MG, 4X/DAY
  4. ACCOLATE [Concomitant]
     Dosage: 20 MG, 2X/DAY
  5. ZEGERID [Concomitant]
     Dosage: 20 MG, 1X/DAY
  6. LIOTHYRONINE [Concomitant]
     Dosage: 25 UG, 1 TAB UP TO 2 TIMES A DAY
  7. BPM PSEUDO [Concomitant]
     Dosage: 6-45 MG, 1 OR 2 TABS EVERY 12HRS AS NEEDED
  8. VOLTAREN [Concomitant]
     Dosage: 2 G, 4X/DAY
  9. KETOPROFEN [Concomitant]
     Indication: PAIN
     Dosage: 10 %, UP TO 4 TIMES A DAY AS NEEDED
  10. LIDOCAINE [Concomitant]
     Indication: PAIN
     Dosage: 5 %, UP TO 4 TIMES A DAY AS NEEDED
  11. PROMETHAZINE [Concomitant]
     Indication: NAUSEA
     Dosage: 25MG 1 TAB EVERY 6HRS AS NEED
  12. MEPERITAB [Concomitant]
     Indication: PAIN
     Dosage: 50 MG, TAKE 1-11/2 TABS EVERY 6HRS AS NEED
  13. PENTAZOCINE/ APAP [Concomitant]
     Indication: PAIN
     Dosage: 25-650 MG,1 TAB 4 TIMES A DAY AS NEEDED

REACTIONS (3)
  - Anger [Recovered/Resolved]
  - Agitation [Recovered/Resolved]
  - Insomnia [Recovered/Resolved]
